FAERS Safety Report 16102011 (Version 1)
Quarter: 2019Q1

REPORT INFORMATION
  Report Type: Spontaneous
  Country: FR (occurrence: FR)
  Receive Date: 20190321
  Receipt Date: 20190321
  Transmission Date: 20190418
  Serious: Yes (Life-Threatening, Hospitalization)
  Sender: FDA-Public Use
  Company Number: PHHY2019FR062478

PATIENT
  Age: 39 Year
  Sex: Female
  Weight: 63 kg

DRUGS (3)
  1. IBUPROFEN. [Suspect]
     Active Substance: IBUPROFEN
     Indication: INFLUENZA LIKE ILLNESS
     Dosage: 400 MG, UNK
     Route: 048
  2. AERIUS (DESLORATADINE) [Suspect]
     Active Substance: DESLORATADINE
     Indication: INFLUENZA LIKE ILLNESS
     Route: 048
  3. PYOSTACINE [Suspect]
     Active Substance: PRISTINAMYCIN
     Indication: INFLUENZA LIKE ILLNESS
     Dosage: 500 MG, UNK
     Route: 048

REACTIONS (4)
  - Erythema [Recovered/Resolved]
  - Anaphylactic shock [Recovered/Resolved]
  - Angioedema [Recovered/Resolved]
  - Pruritus generalised [Recovered/Resolved]

NARRATIVE: CASE EVENT DATE: 20181109
